FAERS Safety Report 9517038 (Version 1)
Quarter: 2013Q3

REPORT INFORMATION
  Report Type: Spontaneous
  Country: US (occurrence: US)
  Receive Date: 20130911
  Receipt Date: 20130911
  Transmission Date: 20140515
  Serious: Yes (Hospitalization)
  Sender: FDA-Public Use
  Company Number: US-PFIZER INC-2013260410

PATIENT
  Sex: Female

DRUGS (2)
  1. DILANTIN-125 [Suspect]
     Indication: CONVULSION
     Dosage: UNK
     Dates: start: 2003
  2. DILANTIN-125 [Suspect]
     Dosage: UNK

REACTIONS (5)
  - Convulsion [Unknown]
  - Anxiety [Unknown]
  - Nervousness [Unknown]
  - Feeling abnormal [Unknown]
  - Hunger [Unknown]
